FAERS Safety Report 22103398 (Version 1)
Quarter: 2023Q1

REPORT INFORMATION
  Report Type: Spontaneous
  Country: US (occurrence: US)
  Receive Date: 20230316
  Receipt Date: 20230316
  Transmission Date: 20230417
  Serious: No
  Sender: FDA-Public Use
  Company Number: US-MYLANLABS-2023M1025106

PATIENT
  Age: 67 Year
  Sex: Female
  Weight: 88.45 kg

DRUGS (1)
  1. LIDOCAINE PATCH [Suspect]
     Active Substance: LIDOCAINE
     Indication: Pain
     Dosage: 5 PERCENT, BID (EVERY 12 HOURS)
     Route: 003
     Dates: start: 20221222

REACTIONS (2)
  - Product adhesion issue [Unknown]
  - Off label use [Unknown]

NARRATIVE: CASE EVENT DATE: 20230305
